FAERS Safety Report 7015366-6 (Version None)
Quarter: 2010Q3

REPORT INFORMATION
  Report Type: 
  Country: None (occurrence: None)
  Receive Date: 20100927
  Receipt Date: 20100921
  Transmission Date: 20110219
  Serious: Yes (Other)
  Sender: FDA-Public Use
  Company Number: US-B.I. PHARMACEUTICALS,INC./RIDGEFIELD-2010-BP-10754BP

PATIENT
  Sex: Male

DRUGS (8)
  1. SPIRIVA [Suspect]
     Indication: CHRONIC OBSTRUCTIVE PULMONARY DISEASE
     Dosage: 18 MCG
     Route: 055
     Dates: start: 20100301
  2. FLORADIL [Concomitant]
     Indication: CHRONIC OBSTRUCTIVE PULMONARY DISEASE
     Route: 055
  3. PROVENTIL-HFA [Concomitant]
     Indication: CHRONIC OBSTRUCTIVE PULMONARY DISEASE
     Route: 055
  4. ENBRIL [Concomitant]
     Indication: PSORIASIS
     Dosage: INJ, 50 MG Q WEEK.
  5. METHOTREXATE [Concomitant]
     Indication: PSORIASIS
     Route: 048
  6. FOLIC ACID [Concomitant]
     Indication: PROPHYLAXIS
     Dosage: 1 MG
     Route: 048
  7. METHYLPREDNISOLONE ACETATE [Concomitant]
     Indication: PSORIASIS
     Dosage: 4MG PRN
     Route: 048
  8. FERROUS SULFATE [Concomitant]
     Indication: PROPHYLAXIS
     Dosage: 325 MG
     Route: 048

REACTIONS (2)
  - DYSPNOEA [None]
  - PROSTATE CANCER [None]
